FAERS Safety Report 11265023 (Version 1)
Quarter: 2015Q3

REPORT INFORMATION
  Report Type: Spontaneous
  Country: US (occurrence: US)
  Receive Date: 20150713
  Receipt Date: 20150713
  Transmission Date: 20151125
  Serious: Yes (Life-Threatening, Other)
  Sender: FDA-Public Use
  Company Number: 2015SP002369

PATIENT
  Age: 30 Year
  Sex: Female

DRUGS (3)
  1. LATUDA [Suspect]
     Active Substance: LURASIDONE HYDROCHLORIDE
     Indication: PSYCHOTIC DISORDER
     Route: 048
  2. AMPHETAMINE [Suspect]
     Active Substance: AMPHETAMINE
  3. ZOLOFT [Suspect]
     Active Substance: SERTRALINE HYDROCHLORIDE

REACTIONS (4)
  - Twin pregnancy [Unknown]
  - Intra-abdominal haemorrhage [Unknown]
  - Premature separation of placenta [Unknown]
  - Foetal death [Recovered/Resolved]
